FAERS Safety Report 9984502 (Version 1)
Quarter: 2014Q1

REPORT INFORMATION
  Report Type: Spontaneous
  Country: US (occurrence: US)
  Receive Date: 20140307
  Receipt Date: 20140307
  Transmission Date: 20141002
  Serious: No
  Sender: FDA-Public Use
  Company Number: US-ABBVIE-13P-163-1183635-00

PATIENT
  Age: 64 Year
  Sex: Male
  Weight: 72.64 kg

DRUGS (3)
  1. HUMIRA [Suspect]
     Indication: PSORIASIS
     Dosage: ONE DOSE
     Dates: start: 201301, end: 201301
  2. HUMIRA [Suspect]
     Indication: PSORIATIC ARTHROPATHY
     Dosage: ONE WK AFTER 80MG DOSE
     Dates: start: 2013
  3. CLOBETASOL [Concomitant]
     Indication: PSORIASIS
     Dosage: INTERMITTENT

REACTIONS (3)
  - Psoriatic arthropathy [Not Recovered/Not Resolved]
  - Psoriasis [Not Recovered/Not Resolved]
  - Drug ineffective [Not Recovered/Not Resolved]
